FAERS Safety Report 8872477 (Version 3)
Quarter: 2012Q4

REPORT INFORMATION
  Report Type: 
  Country: DK (occurrence: AU)
  Receive Date: 20121030
  Receipt Date: 20121109
  Transmission Date: 20130627
  Serious: Yes (Death)
  Sender: FDA-Public Use
  Company Number: AU-FRI-1000039942

PATIENT
  Age: 23 Year
  Sex: Male

DRUGS (5)
  1. CITALOPRAM [Suspect]
  2. DIAZEPAM [Suspect]
  3. NORDIAZEPAM [Suspect]
  4. ETHANOL [Suspect]
  5. OXYCODONE [Suspect]

REACTIONS (2)
  - Alcohol interaction [Fatal]
  - Toxicity to various agents [Fatal]
